FAERS Safety Report 4714586-0 (Version None)
Quarter: 2005Q3

REPORT INFORMATION
  Report Type: 
  Country: None (occurrence: None)
  Receive Date: 20050713
  Receipt Date: 20050713
  Transmission Date: 20060218
  Serious: Yes (Hospitalization)
  Sender: FDA-Public Use
  Company Number: None

PATIENT
  Age: 60 Year
  Sex: Female

DRUGS (5)
  1. PROPYLTHIOURACIL [Suspect]
     Indication: HYPERTHYROIDISM
     Dosage: ORAL; 150.0 MILLIGRAM
     Route: 048
     Dates: start: 20050527, end: 20050610
  2. WARFARIN ; COUNMADIN; BRISTOL MYERS SQUIBB; BLOOD [Suspect]
     Indication: ATRIAL FIBRILLATION
     Dosage: ORAL; 2.0 MILLIGRAM
     Route: 048
     Dates: start: 20050601, end: 20050610
  3. PROPYLTHIOURACIL [Concomitant]
  4. DIGOXIN [Concomitant]
  5. CARVEDOLOL [Concomitant]

REACTIONS (4)
  - COAGULATION TIME PROLONGED [None]
  - COAGULOPATHY [None]
  - INTERNATIONAL NORMALISED RATIO INCREASED [None]
  - TREATMENT NONCOMPLIANCE [None]
